FAERS Safety Report 7448064-5 (Version None)
Quarter: 2011Q2

REPORT INFORMATION
  Report Type: 
  Country: None (occurrence: None)
  Receive Date: 20110429
  Receipt Date: 20100401
  Transmission Date: 20111010
  Serious: No
  Sender: FDA-Public Use
  Company Number: US-ASTRAZENECA-2010SE14497

PATIENT
  Age: 67 Year
  Sex: Female

DRUGS (3)
  1. NEXIUM [Suspect]
     Route: 048
  2. CRESTOR [Suspect]
     Route: 048
  3. SEROQUEL [Suspect]
     Route: 048

REACTIONS (5)
  - TACHYPHRENIA [None]
  - GASTROOESOPHAGEAL REFLUX DISEASE [None]
  - MYALGIA [None]
  - ANXIETY [None]
  - INSOMNIA [None]
